FAERS Safety Report 9704773 (Version 1)
Quarter: 2013Q4

REPORT INFORMATION
  Report Type: Spontaneous
  Country: GB (occurrence: GB)
  Receive Date: 20131122
  Receipt Date: 20131122
  Transmission Date: 20140711
  Serious: Yes (Other)
  Sender: FDA-Public Use
  Company Number: PHHY2013GB131540

PATIENT
  Age: 49 Year
  Sex: Female
  Weight: 68.3 kg

DRUGS (3)
  1. SIMVASTATIN [Suspect]
     Indication: BLOOD CHOLESTEROL INCREASED
     Dosage: 20 MG, UNK
     Route: 048
     Dates: start: 20130715, end: 20130810
  2. AMITRIPTYLINE [Concomitant]
  3. OMEPRAZOLE [Concomitant]

REACTIONS (2)
  - Palpitations [Recovered/Resolved]
  - Sleep disorder [Unknown]
